FAERS Safety Report 17910205 (Version 1)
Quarter: 2020Q2

REPORT INFORMATION
  Report Type: Spontaneous
  Country: GB (occurrence: GB)
  Receive Date: 20200617
  Receipt Date: 20200617
  Transmission Date: 20200714
  Serious: Yes (Hospitalization)
  Sender: FDA-Public Use
  Company Number: GB-BIOMARINAP-GB-2020-130701

PATIENT
  Age: 7 Year
  Sex: Female

DRUGS (2)
  1. AMETOP [TETRACAINE HYDROCHLORIDE] [Concomitant]
     Indication: PRODUCT USED FOR UNKNOWN INDICATION
     Route: 061
  2. NAGLAZYME [Suspect]
     Active Substance: GALSULFASE
     Indication: MUCOPOLYSACCHARIDOSIS VI
     Dosage: 20 MILLIGRAM, QW
     Route: 042

REACTIONS (3)
  - Product dose omission [Unknown]
  - Pyrexia [Unknown]
  - Ear pain [Unknown]

NARRATIVE: CASE EVENT DATE: 20200609
